FAERS Safety Report 7281503-1 (Version None)
Quarter: 2011Q1

REPORT INFORMATION
  Report Type: 
  Country: None (occurrence: None)
  Receive Date: 20110208
  Receipt Date: 20110127
  Transmission Date: 20110831
  Serious: Yes (Other)
  Sender: FDA-Public Use
  Company Number: PHHY2010DE85935

PATIENT
  Age: 65 Year
  Sex: Male

DRUGS (2)
  1. ASPIRIN [Concomitant]
  2. DAFIRO HCT [Suspect]
     Dosage: 10/160/12.5 MG

REACTIONS (2)
  - CIRCULATORY COLLAPSE [None]
  - HEART RATE IRREGULAR [None]
